FAERS Safety Report 20884402 (Version 1)
Quarter: 2022Q2

REPORT INFORMATION
  Report Type: Spontaneous
  Country: US (occurrence: US)
  Receive Date: 20220527
  Receipt Date: 20220527
  Transmission Date: 20220721
  Serious: Yes (Other)
  Sender: FDA-Public Use
  Company Number: US-PROCTER_AND_GAMBLE-GS22045767

PATIENT
  Age: 75 Year
  Sex: Female

DRUGS (1)
  1. SECRET ANTIPERSPIRANT/DEODORANT POWDER FRESH [Suspect]
     Active Substance: ALUMINUM ZIRCONIUM TRICHLOROHYDREX GLY
     Dosage: ONE SWIPE PER ARM ONCE A DAY
     Route: 061
     Dates: start: 202205, end: 20220515

REACTIONS (10)
  - Swollen tongue [Recovering/Resolving]
  - Mouth swelling [Recovering/Resolving]
  - Throat irritation [Recovering/Resolving]
  - Respiratory tract irritation [Recovering/Resolving]
  - Lip disorder [Recovering/Resolving]
  - Hypoaesthesia oral [Recovering/Resolving]
  - Oral discomfort [Recovering/Resolving]
  - Tongue discomfort [Unknown]
  - Lip dry [Unknown]
  - Product odour abnormal [Unknown]

NARRATIVE: CASE EVENT DATE: 20220501
